FAERS Safety Report 8175126-X (Version None)
Quarter: 2012Q1

REPORT INFORMATION
  Report Type: 
  Country: None (occurrence: None)
  Receive Date: 20120229
  Receipt Date: 20120223
  Transmission Date: 20120608
  Serious: Yes (Disabling)
  Sender: FDA-Public Use
  Company Number: PHHY2012IT015935

PATIENT
  Sex: Female

DRUGS (3)
  1. ARIMIDEX [Concomitant]
     Indication: BREAST CANCER
     Dosage: 1 MG, UNK
     Dates: start: 20100616, end: 20120104
  2. ZOMETA [Suspect]
     Indication: BREAST CANCER
     Dosage: 4 MG, CYCLIC DOSE
     Dates: start: 20100621
  3. ZOMETA [Suspect]
     Dosage: 4 MG, CYCLIC DOSE
     Dates: end: 20111206

REACTIONS (1)
  - OSTEONECROSIS OF JAW [None]
